FAERS Safety Report 4531576-1 (Version None)
Quarter: 2004Q4

REPORT INFORMATION
  Report Type: 
  Country: None (occurrence: None)
  Receive Date: 20041216
  Receipt Date: 20041210
  Transmission Date: 20050328
  Serious: Yes (Hospitalization, Other)
  Sender: FDA-Public Use
  Company Number: KII-2004-0014252

PATIENT
  Age: 45 Year
  Sex: Female

DRUGS (8)
  1. OXYCODONE HCL [Suspect]
     Dosage: ORAL
     Route: 048
  2. THEOPHYLLINE (THEOPHYLLINE)(SIMILAR TO 40-086) [Suspect]
  3. BENZODIAZEPINE DERIVATIVES () [Suspect]
     Dosage: ORAL
     Route: 048
  4. NORTRIPTYLINE HCL [Suspect]
     Dosage: ORAL
     Route: 048
  5. ACETAMINOPHEN [Suspect]
  6. TEGRETOL [Suspect]
  7. BUTALBITAL [Suspect]
  8. DEXTROMETHORPHAN HYDROBROMIDE [Suspect]

REACTIONS (10)
  - AGITATION [None]
  - BLOOD CREATINE PHOSPHOKINASE INCREASED [None]
  - BLOOD PH INCREASED [None]
  - BLOOD POTASSIUM DECREASED [None]
  - BLOOD PRESSURE DECREASED [None]
  - ELECTROCARDIOGRAM QRS COMPLEX PROLONGED [None]
  - ELECTROCARDIOGRAM QRS COMPLEX SHORTENED [None]
  - HEART RATE INCREASED [None]
  - LETHARGY [None]
  - MULTIPLE DRUG OVERDOSE [None]
